FAERS Safety Report 8568510-3 (Version None)
Quarter: 2012Q3

REPORT INFORMATION
  Report Type: 
  Country: None (occurrence: None)
  Receive Date: 20120803
  Receipt Date: 20120113
  Transmission Date: 20120928
  Serious: No
  Sender: FDA-Public Use
  Company Number: US-ABBOTT-12P-163-0893826-00

PATIENT
  Sex: Male

DRUGS (4)
  1. NIASPAN [Suspect]
     Indication: PRODUCT USED FOR UNKNOWN INDICATION
     Dosage: 500 MG DAILY, IN THE EVENING
     Dates: start: 20111201
  2. LAMICTAL [Concomitant]
     Indication: CONVULSION
  3. ASPIRIN [Concomitant]
     Indication: PRODUCT USED FOR UNKNOWN INDICATION
     Dosage: WITH NIASPAN COATED
  4. ZOLPIDEM [Concomitant]
     Indication: INSOMNIA

REACTIONS (1)
  - FLUSHING [None]
